FAERS Safety Report 25676667 (Version 3)
Quarter: 2025Q3

REPORT INFORMATION
  Report Type: Spontaneous
  Country: EU (occurrence: EU)
  Receive Date: 20250813
  Receipt Date: 20250905
  Transmission Date: 20251020
  Serious: Yes (Disabling, Other)
  Sender: MYLAN
  Company Number: EU-MYLANLABS-2025M1067672

PATIENT
  Age: 31 Year
  Sex: Male
  Weight: 75 kg

DRUGS (1)
  1. FINASTERIDE [Suspect]
     Active Substance: FINASTERIDE
     Indication: Product used for unknown indication

REACTIONS (11)
  - Suicidal ideation [Unknown]
  - Sensory loss [Recovered/Resolved]
  - Hot flush [Unknown]
  - Malaise [Unknown]
  - Headache [Recovered/Resolved]
  - Hyperhidrosis [Unknown]
  - Dizziness [Unknown]
  - Asthenia [Unknown]
  - Insomnia [Unknown]
  - Libido disorder [Recovered/Resolved]
  - Fatigue [Recovered/Resolved]
